FAERS Safety Report 4647952-2 (Version None)
Quarter: 2005Q2

REPORT INFORMATION
  Report Type: 
  Country: None (occurrence: None)
  Receive Date: 20050428
  Receipt Date: 20050419
  Transmission Date: 20051028
  Serious: Yes (Death, Hospitalization)
  Sender: FDA-Public Use
  Company Number: US-ABBOTT-05P-163-0297911-00

PATIENT
  Sex: Female

DRUGS (3)
  1. HUMIRA [Suspect]
     Indication: RHEUMATOID ARTHRITIS
     Route: 058
     Dates: start: 20041028
  2. HUMIRA [Suspect]
     Route: 058
     Dates: start: 20040527, end: 20040902
  3. ETANERCEPT [Concomitant]
     Indication: RHEUMATOID ARTHRITIS
     Dates: start: 20040909

REACTIONS (6)
  - ANXIETY [None]
  - BLADDER CANCER [None]
  - DEEP VEIN THROMBOSIS [None]
  - PAIN [None]
  - PLEURAL EFFUSION [None]
  - PULMONARY EMBOLISM [None]
